FAERS Safety Report 5844136-7 (Version None)
Quarter: 2008Q3

REPORT INFORMATION
  Report Type: 
  Country: None (occurrence: None)
  Receive Date: 20080808
  Receipt Date: 20070302
  Transmission Date: 20090109
  Serious: Yes (Hospitalization, Disabling, Other)
  Sender: FDA-Public Use
  Company Number: 2007-00236FE

PATIENT
  Age: 7 Year
  Sex: Female

DRUGS (1)
  1. ZOMACTON(ZOMACTON) (SOMATROPIN) [Suspect]
     Indication: SMALL FOR DATES BABY
     Dosage: 35
     Route: 058
     Dates: start: 20060818, end: 20070214

REACTIONS (1)
  - TYPE 1 DIABETES MELLITUS [None]
